FAERS Safety Report 11870309 (Version 1)
Quarter: 2015Q4

REPORT INFORMATION
  Report Type: Report from Study
  Country: CA (occurrence: CA)
  Receive Date: 20151228
  Receipt Date: 20151228
  Transmission Date: 20160305
  Serious: Yes (Other)
  Sender: FDA-Public Use
  Company Number: CA-JNJFOC-20151214512

PATIENT
  Age: 13 Year
  Sex: Female

DRUGS (7)
  1. PREDNISONE. [Concomitant]
     Active Substance: PREDNISONE
     Route: 065
  2. REMICADE [Suspect]
     Active Substance: INFLIXIMAB
     Indication: COLITIS
     Dosage: 2 HOURS THERAPY DURATION
     Route: 042
     Dates: start: 20150423
  3. REMICADE [Suspect]
     Active Substance: INFLIXIMAB
     Indication: COLITIS
     Route: 042
     Dates: start: 20151216
  4. VITAMIN D [Concomitant]
     Active Substance: CHOLECALCIFEROL
     Route: 065
  5. FOLIC ACID. [Concomitant]
     Active Substance: FOLIC ACID
     Route: 065
  6. PENTASA [Concomitant]
     Active Substance: MESALAMINE
     Dosage: 6 PILLS DAILY
     Route: 065
  7. FERAMAX [Concomitant]
     Active Substance: IRON\POLYSACCHARIDES
     Route: 065

REACTIONS (2)
  - Infectious mononucleosis [Recovering/Resolving]
  - Frequent bowel movements [Recovering/Resolving]

NARRATIVE: CASE EVENT DATE: 201511
